FAERS Safety Report 9502678 (Version 1)
Quarter: 2013Q1

REPORT INFORMATION
  Report Type: Spontaneous
  Country: US (occurrence: None)
  Receive Date: 20130225
  Receipt Date: 20130225
  Transmission Date: 20140127
  Serious: Yes (Hospitalization)
  Sender: FDA-Public Use
  Company Number: 2012-117

PATIENT
  Age: 45 Year
  Sex: Male

DRUGS (1)
  1. PRIALT [Suspect]
     Indication: COMPLEX REGIONAL PAIN SYNDROME
     Dosage: , ONCE/HOUR,
     Route: 037

REACTIONS (2)
  - Confusional state [None]
  - Hallucination [None]
